FAERS Safety Report 4376784-8 (Version None)
Quarter: 2004Q2

REPORT INFORMATION
  Report Type: 
  Country: None (occurrence: None)
  Receive Date: 20040608
  Receipt Date: 20040525
  Transmission Date: 20050107
  Serious: Yes (Hospitalization)
  Sender: FDA-Public Use
  Company Number: 02100-USA-04-0232

PATIENT
  Age: 60 Year
  Sex: Male

DRUGS (3)
  1. PLETAL [Suspect]
     Indication: THROMBOSIS PROPHYLAXIS
     Dosage: 100 MG BID ORAL
     Route: 048
     Dates: start: 20021019, end: 20021027
  2. RONAL [Suspect]
     Indication: ANTIPLATELET THERAPY
     Dosage: 100 MG QD ORAL
     Route: 048
     Dates: start: 20021019, end: 20021027
  3. TENORMIN [Concomitant]

REACTIONS (2)
  - MEDICAL DEVICE COMPLICATION [None]
  - THROMBOSIS [None]
